FAERS Safety Report 21495104 (Version 3)
Quarter: 2024Q1

REPORT INFORMATION
  Report Type: Spontaneous
  Country: DE (occurrence: DE)
  Receive Date: 20221022
  Receipt Date: 20240102
  Transmission Date: 20240409
  Serious: Yes (Other)
  Sender: FDA-Public Use
  Company Number: DE-ROCHE-3195186

PATIENT
  Age: 55 Year
  Sex: Male

DRUGS (14)
  1. IRINOTECAN [Suspect]
     Active Substance: IRINOTECAN
     Indication: Colorectal cancer metastatic
     Dosage: 180 MILLIGRAM/SQ. METER,180 MG/SQM D1
     Route: 065
  2. LEUCOVORIN [Suspect]
     Active Substance: LEUCOVORIN\LEUCOVORIN CALCIUM
     Indication: Colorectal cancer metastatic
     Dosage: 200 MG/SQM D1 AND 600 MG/SQM D1 + 2, Q14D
     Route: 065
  3. OXALIPLATIN [Suspect]
     Active Substance: OXALIPLATIN
     Indication: Colorectal cancer metastatic
     Dosage: 85 MILLIGRAM/SQ. METER,85 MG/SQM D1
     Route: 065
  4. FLUOROURACIL [Suspect]
     Active Substance: FLUOROURACIL
     Indication: Colorectal cancer metastatic
     Dosage: 400 MG/M2, ON DAYS 1 AND 2
     Route: 040
  5. FLUOROURACIL [Suspect]
     Active Substance: FLUOROURACIL
     Dosage: 400 MG/M2, ON DAYS 1 AND 2 IN A 14-DAY CYCLE
     Route: 040
  6. BEVACIZUMAB [Suspect]
     Active Substance: BEVACIZUMAB
     Indication: Colorectal cancer metastatic
     Dosage: 5 MILLIGRAM/KILOGRAM
     Route: 065
  7. CETUXIMAB [Suspect]
     Active Substance: CETUXIMAB
     Indication: Colorectal cancer metastatic
     Dosage: 250 MILLIGRAM/SQ. METER,250 MG/SQM WEEKLY
     Route: 065
  8. PEMBROLIZUMAB [Suspect]
     Active Substance: PEMBROLIZUMAB
     Indication: Colorectal cancer metastatic
     Dosage: 200 MILLIGRAM/SQ. METER,200 MG/SQM,Q21D TOTAL OF 9 CYCLES, EVERY 3 WEEKS
     Route: 065
  9. PEMBROLIZUMAB [Suspect]
     Active Substance: PEMBROLIZUMAB
     Indication: Adenocarcinoma of colon
     Dosage: 200 MILLIGRAM/SQ. METER EVERY 3 WEEKS
     Route: 065
     Dates: start: 201712, end: 2018
  10. IPILIMUMAB [Concomitant]
     Active Substance: IPILIMUMAB
     Indication: Product used for unknown indication
     Dosage: 3 MILLIGRAM/KILOGRAM (3 MG/KG IN CYCLE 1, FOLLOWED BY 1 MG/KG IN CYCLE 2-4. CYCLE 3 AND 4 WERE DELAY
     Route: 065
     Dates: start: 201807
  11. IPILIMUMAB [Concomitant]
     Active Substance: IPILIMUMAB
     Dosage: 1 MILLIGRAM/KILOGRAM
     Route: 065
  12. IPILIMUMAB [Concomitant]
     Active Substance: IPILIMUMAB
     Dosage: 2 MILLIGRAM/KILOGRAM, IN THE FOURTH CYCLE
     Route: 065
  13. NIVOLUMAB [Concomitant]
     Active Substance: NIVOLUMAB
     Indication: Product used for unknown indication
     Dosage: 3 MILLIGRAM/KILOGRAM, AFTER 4 CYCLES
     Route: 065
  14. NIVOLUMAB [Concomitant]
     Active Substance: NIVOLUMAB
     Dosage: 1 MILLIGRAM/KILOGRAM,DOSE WAS 1 MG /KG IN CYCLE 1 AND 3 MG/KG FROM CYCLE 2 ON.
     Route: 065

REACTIONS (5)
  - Disease progression [Unknown]
  - Immune-mediated hepatic disorder [Unknown]
  - Tumour pseudoprogression [Recovering/Resolving]
  - Drug ineffective [Unknown]
  - Drug resistance [Unknown]
